FAERS Safety Report 7553916-1 (Version None)
Quarter: 2011Q2

REPORT INFORMATION
  Report Type: 
  Country: None (occurrence: None)
  Receive Date: 20110617
  Receipt Date: 20110608
  Transmission Date: 20111010
  Serious: Yes (Hospitalization)
  Sender: FDA-Public Use
  Company Number: GR-SANOFI-AVENTIS-2010SA021099

PATIENT
  Age: 66 Year
  Sex: Female
  Weight: 80 kg

DRUGS (13)
  1. INVESTIGATIONAL DRUG [Suspect]
     Indication: COLORECTAL CANCER
     Route: 048
     Dates: start: 20100303, end: 20100317
  2. LISINOPRIL AND HYDROCHLOROTHIAZIDE [Concomitant]
     Indication: HYPERTENSION
     Dosage: 20/12.5 MG
  3. PREGABALIN [Concomitant]
     Indication: PAIN
     Dates: start: 20091001
  4. LEVOTHYROXINE SODIUM [Concomitant]
     Indication: THYROID THERAPY
     Dates: start: 20000101
  5. FLUOROURACIL [Suspect]
     Indication: COLORECTAL CANCER
     Dosage: DAILY DOSE: IV BOLUS ON DAY 1 OF EACH 14-DAY CYCLE, THEN 2400 MG/M2 IV INFUSION 46-48 HOURS
     Route: 042
     Dates: start: 20100303, end: 20100317
  6. LEUCOVORIN CALCIUM [Concomitant]
     Indication: CHEMOTHERAPY
  7. LEUCOVORIN CALCIUM [Concomitant]
     Indication: COLORECTAL CANCER
     Dates: start: 20100303, end: 20100317
  8. OXALIPLATIN [Suspect]
     Indication: COLORECTAL CANCER
     Dosage: DOSE: 85MG/M2 IV, 120 MIN ON DAY 1 OF EACH CYCLE
     Route: 042
     Dates: start: 20100303, end: 20100317
  9. LOVASTATIN [Concomitant]
     Dates: start: 20000101
  10. LISINOPRIL AND HYDROCHLOROTHIAZIDE [Concomitant]
     Dates: start: 20000101
  11. LEUCOVORIN CALCIUM [Concomitant]
     Indication: COLORECTAL CANCER
     Route: 041
     Dates: start: 20100303, end: 20100303
  12. TRAMADOL HCL [Concomitant]
     Indication: PAIN
     Dates: start: 20091001
  13. FENTANYL-100 [Concomitant]
     Indication: PAIN
     Route: 062
     Dates: start: 20091001

REACTIONS (4)
  - NAUSEA [None]
  - VAGINAL HAEMORRHAGE [None]
  - ORTHOSTATIC HYPOTENSION [None]
  - DIZZINESS [None]
